FAERS Safety Report 6429329-2 (Version None)
Quarter: 2009Q4

REPORT INFORMATION
  Report Type: 
  Country: None (occurrence: None)
  Receive Date: 20091030
  Receipt Date: 20091020
  Transmission Date: 20100525
  Serious: Yes (Hospitalization, Other)
  Sender: FDA-Public Use
  Company Number: 2009SP031645

PATIENT
  Age: 54 Year
  Sex: Male

DRUGS (5)
  1. RIBAVIRIN [Suspect]
     Indication: HEPATITIS C
     Dosage: 600 MG;BID;PO; 400 MG;BID;PO
     Route: 048
     Dates: start: 20080501, end: 20090101
  2. RIBAVIRIN [Suspect]
     Indication: HEPATITIS C
     Dosage: 600 MG;BID;PO; 400 MG;BID;PO
     Route: 048
     Dates: start: 20090101, end: 20090921
  3. INFERGEN [Suspect]
     Indication: HEPATITIS C
     Dosage: 15 MCG;QD;SC
     Route: 058
     Dates: start: 20080829, end: 20090921
  4. CELEXA [Concomitant]
  5. PEG-INTRON [Concomitant]

REACTIONS (9)
  - ANAEMIA [None]
  - DEHYDRATION [None]
  - FALL [None]
  - MUSCLE RIGIDITY [None]
  - NO THERAPEUTIC RESPONSE [None]
  - PROGRESSIVE MULTIFOCAL LEUKOENCEPHALOPATHY [None]
  - PYREXIA [None]
  - TACHYCARDIA [None]
  - VOMITING [None]
